FAERS Safety Report 13941926 (Version 2)
Quarter: 2018Q2

REPORT INFORMATION
  Report Type: Spontaneous
  Country: GB (occurrence: GB)
  Receive Date: 20170906
  Receipt Date: 20180607
  Transmission Date: 20180711
  Serious: Yes (Hospitalization, Other)
  Sender: FDA-Public Use
  Company Number: GB-SA-2017SA162914

PATIENT
  Sex: Male
  Weight: 2.7 kg

DRUGS (2)
  1. LANTUS [Suspect]
     Active Substance: INSULIN GLARGINE
     Dosage: 46 DF, QD
     Route: 064
     Dates: start: 20110419
  2. NOVORAPID [Suspect]
     Active Substance: INSULIN ASPART
     Dosage: 14 DF,QD
     Route: 064
     Dates: start: 20110419

REACTIONS (4)
  - Foetal exposure during pregnancy [Unknown]
  - Hypoglycaemia [Unknown]
  - Respiratory distress [Unknown]
  - Jaundice [Unknown]

NARRATIVE: CASE EVENT DATE: 20161103
